FAERS Safety Report 9162539 (Version 1)
Quarter: 2013Q1

REPORT INFORMATION
  Report Type: Spontaneous
  Country: US (occurrence: US)
  Receive Date: 20130314
  Receipt Date: 20130314
  Transmission Date: 20140127
  Serious: Yes (Hospitalization, Other)
  Sender: FDA-Public Use
  Company Number: US-JNJFOC-20130300430

PATIENT
  Sex: Female
  Weight: 63.5 kg

DRUGS (5)
  1. DURAGESIC [Suspect]
     Indication: PAIN
     Route: 062
     Dates: start: 201111
  2. VOLTAREN [Concomitant]
     Indication: ANTIINFLAMMATORY THERAPY
     Route: 048
  3. PERCOCET [Concomitant]
     Indication: BREAKTHROUGH PAIN
     Dosage: 10-235 MG
     Route: 048
  4. XANAX [Concomitant]
     Indication: ANXIETY
     Route: 048
  5. LIDODERM [Concomitant]
     Indication: PAIN
     Route: 062

REACTIONS (13)
  - Grand mal convulsion [Not Recovered/Not Resolved]
  - Amnesia [Not Recovered/Not Resolved]
  - Spinal osteoarthritis [Not Recovered/Not Resolved]
  - Intervertebral disc degeneration [Not Recovered/Not Resolved]
  - Exostosis [Not Recovered/Not Resolved]
  - Impaired healing [Unknown]
  - Abnormal loss of weight [Recovered/Resolved]
  - Muscle atrophy [Unknown]
  - Mental impairment [Not Recovered/Not Resolved]
  - Depression [Unknown]
  - Asthenia [Not Recovered/Not Resolved]
  - Decreased appetite [Unknown]
  - Musculoskeletal chest pain [Unknown]
